FAERS Safety Report 17431324 (Version 2)
Quarter: 2020Q1

REPORT INFORMATION
  Report Type: Spontaneous
  Country: NL (occurrence: NL)
  Receive Date: 20200218
  Receipt Date: 20200228
  Transmission Date: 20200409
  Serious: Yes (Death, Hospitalization, Other)
  Sender: FDA-Public Use
  Company Number: NL-BAXTER-2020BAX003709

PATIENT
  Age: 57 Year
  Sex: Female

DRUGS (13)
  1. PREDNISONE. [Concomitant]
     Active Substance: PREDNISONE
     Indication: ADULT T-CELL LYMPHOMA/LEUKAEMIA
     Dosage: DAILY DOSE OF PREDNISONE WAS GRADUALLY TAPERED TO THE PREADMISSION DOSE OF 10 MG PER DAY
     Route: 065
  2. BENZBROMARONE [Concomitant]
     Active Substance: BENZBROMARONE
     Indication: GOUT
     Dosage: 7 YEARS AFTER THE DIAGNOSIS OF SLE
     Route: 065
  3. PREDNISONE. [Concomitant]
     Active Substance: PREDNISONE
     Indication: SYSTEMIC LUPUS ERYTHEMATOSUS
     Dosage: DAILY ORAL PREDNISONE 10-20 MG PER DAY
     Route: 048
  4. PREDNISONE. [Concomitant]
     Active Substance: PREDNISONE
     Indication: IMMUNOSUPPRESSION
     Dosage: INCREASED TO 60 MG PER DAY
     Route: 065
  5. AZATHIOPRINE. [Concomitant]
     Active Substance: AZATHIOPRINE
     Indication: IMMUNOSUPPRESSION
     Dosage: CUMULATIVE DOSE APPROXIMATELY 400 G
     Route: 065
  6. BENZBROMARONE [Concomitant]
     Active Substance: BENZBROMARONE
     Dosage: INCREASED DOSAGE
     Route: 065
  7. METFORMIN [Concomitant]
     Active Substance: METFORMIN HYDROCHLORIDE
     Indication: TYPE 2 DIABETES MELLITUS
     Route: 048
  8. DOXIL [Suspect]
     Active Substance: DOXORUBICIN HYDROCHLORIDE
     Indication: ADULT T-CELL LYMPHOMA/LEUKAEMIA
     Route: 065
  9. AZATHIOPRINE. [Concomitant]
     Active Substance: AZATHIOPRINE
     Indication: SYSTEMIC LUPUS ERYTHEMATOSUS
  10. CYCLOPHOSPHAMIDE. [Concomitant]
     Active Substance: CYCLOPHOSPHAMIDE
     Indication: ADULT T-CELL LYMPHOMA/LEUKAEMIA
     Dosage: ADJUSTED DOSES
     Route: 065
  11. INSULIN [Concomitant]
     Active Substance: INSULIN NOS
     Indication: PRODUCT USED FOR UNKNOWN INDICATION
     Route: 065
  12. SALINE [Concomitant]
     Active Substance: SODIUM CHLORIDE
     Indication: CARDIO-RESPIRATORY DISTRESS
     Dosage: ISOTONIC
     Route: 065
  13. PREDNISONE. [Concomitant]
     Active Substance: PREDNISONE
     Dosage: CHEMOTHERAPY WITH HIGH-DOSE PREDNISONE
     Route: 065

REACTIONS (14)
  - Cardio-respiratory distress [Fatal]
  - Depressed level of consciousness [Fatal]
  - Hypercalcaemia [Fatal]
  - Tumour lysis syndrome [Fatal]
  - Hyperphosphataemia [Fatal]
  - Nausea [Unknown]
  - Hypocalcaemia [Fatal]
  - Hyperkalaemia [Fatal]
  - Pancytopenia [Fatal]
  - Malaise [Unknown]
  - Diarrhoea [Unknown]
  - Multiple organ dysfunction syndrome [Fatal]
  - Tachypnoea [Fatal]
  - Back pain [Fatal]
